FAERS Safety Report 5695691-1 (Version None)
Quarter: 2008Q2

REPORT INFORMATION
  Report Type: 
  Country: None (occurrence: None)
  Receive Date: 20080407
  Receipt Date: 20080327
  Transmission Date: 20081010
  Serious: Yes (Hospitalization, Other)
  Sender: FDA-Public Use
  Company Number: US-BAYER-200810012NA

PATIENT
  Age: 76 Year
  Sex: Male

DRUGS (23)
  1. SORAFENIB [Suspect]
     Indication: PROSTATE CANCER METASTATIC
     Dosage: TOTAL DAILY DOSE: 800 MG  UNIT DOSE: 200 MG
     Route: 048
     Dates: start: 20071017
  2. MITOXANTRONE [Suspect]
     Indication: PROSTATE CANCER METASTATIC
     Route: 042
     Dates: start: 20071017
  3. ZOMETA [Concomitant]
     Route: 042
  4. ULTRAM [Concomitant]
     Dosage: TOTAL DAILY DOSE: 1 MG
     Route: 048
  5. BUSPAR [Concomitant]
     Dosage: TOTAL DAILY DOSE: 100 MG
     Route: 048
  6. BUSPAR [Concomitant]
  7. KYTRIL [Concomitant]
  8. COMPAZINE [Concomitant]
  9. AVODART [Concomitant]
     Dosage: TOTAL DAILY DOSE: 0.5 MG
     Route: 048
  10. TOPROL-XL [Concomitant]
  11. DIGITEK [Concomitant]
     Route: 048
  12. PRAVACHOL [Concomitant]
     Dosage: TOTAL DAILY DOSE: 40 MG
     Route: 048
  13. COUMADIN [Concomitant]
     Dosage: TOTAL DAILY DOSE: 7 MG
     Route: 048
  14. COUMADIN [Concomitant]
     Dosage: TOTAL DAILY DOSE: 2 MG
     Route: 048
  15. PAXIL [Concomitant]
  16. DESYREL [Concomitant]
  17. EMLA [Concomitant]
  18. ALKA SELTZER [Concomitant]
  19. NORVASC [Concomitant]
     Route: 048
  20. ZOCOR [Concomitant]
  21. PROPOXYPHENE HCL AND ACETAMINOPHEN [Concomitant]
     Route: 048
  22. NITROGLYCERIN [Concomitant]
     Route: 060
  23. SULFAMETHOXAZOLE + TRIMETHOPRIM [Concomitant]
     Route: 048

REACTIONS (17)
  - BLOOD CREATININE INCREASED [None]
  - BLOOD UREA INCREASED [None]
  - CHEST PAIN [None]
  - DEEP VEIN THROMBOSIS [None]
  - DYSPHAGIA [None]
  - ELECTROCARDIOGRAM ABNORMAL [None]
  - HAEMATOCRIT DECREASED [None]
  - HAEMOGLOBIN DECREASED [None]
  - MUSCULAR WEAKNESS [None]
  - NEUTROPENIA [None]
  - OESOPHAGITIS [None]
  - PAIN IN EXTREMITY [None]
  - PERIPHERAL MOTOR NEUROPATHY [None]
  - PLATELET COUNT DECREASED [None]
  - RED BLOOD CELL COUNT DECREASED [None]
  - SINUS ARRHYTHMIA [None]
  - SPINAL OSTEOARTHRITIS [None]
